FAERS Safety Report 25868228 (Version 1)
Quarter: 2025Q4

REPORT INFORMATION
  Report Type: Report from Study
  Country: AR (occurrence: AR)
  Receive Date: 20251001
  Receipt Date: 20251001
  Transmission Date: 20260117
  Serious: Yes (Death)
  Sender: ASTELLAS
  Company Number: AR-MONTEVERDE-AR-0893-20250926

PATIENT
  Age: 70 Year
  Sex: Male

DRUGS (1)
  1. ENFORTUMAB VEDOTIN-EJFV [Suspect]
     Active Substance: ENFORTUMAB VEDOTIN-EJFV
     Indication: Transitional cell carcinoma
     Dosage: POWDER FOR SOLUTION FOR INFUSION(200)
     Route: 042
     Dates: start: 20240724

REACTIONS (1)
  - Death [Fatal]

NARRATIVE: CASE EVENT DATE: 20250907
